FAERS Safety Report 15323065 (Version 1)
Quarter: 2018Q3

REPORT INFORMATION
  Report Type: Spontaneous
  Country: US (occurrence: US)
  Receive Date: 20180822
  Receipt Date: 20180822
  Transmission Date: 20181010
  Serious: Yes (Death)
  Sender: FDA-Public Use
  Company Number: None

PATIENT
  Sex: Male

DRUGS (3)
  1. PANTOPRAZOLE [Concomitant]
     Active Substance: PANTOPRAZOLE
  2. RILUZOLE. [Suspect]
     Active Substance: RILUZOLE
     Route: 048
     Dates: start: 20171018
  3. PAROXETINE. [Concomitant]
     Active Substance: PAROXETINE

REACTIONS (1)
  - Death [None]
